FAERS Safety Report 6541439-8 (Version None)
Quarter: 2010Q1

REPORT INFORMATION
  Report Type: 
  Country: None (occurrence: None)
  Receive Date: 20100118
  Receipt Date: 20100112
  Transmission Date: 20100710
  Serious: Yes (Death, Hospitalization)
  Sender: FDA-Public Use
  Company Number: JP-BAXTER-2010BH000855

PATIENT
  Sex: Female

DRUGS (2)
  1. EXTRANEAL [Suspect]
     Indication: RENAL FAILURE CHRONIC
     Route: 033
     Dates: end: 20100112
  2. DIANEAL PD-2 W/ DEXTROSE 1.5% [Suspect]
     Indication: RENAL FAILURE CHRONIC
     Route: 033
     Dates: end: 20100112

REACTIONS (3)
  - MARASMUS [None]
  - MULTI-ORGAN FAILURE [None]
  - SOCIAL STAY HOSPITALISATION [None]
